FAERS Safety Report 11065793 (Version 2)
Quarter: 2015Q2

REPORT INFORMATION
  Report Type: Spontaneous
  Country: US (occurrence: US)
  Receive Date: 20150425
  Receipt Date: 20150524
  Transmission Date: 20150821
  Serious: Yes (Other)
  Sender: FDA-Public Use
  Company Number: US-JNJFOC-20130801891

PATIENT

DRUGS (1)
  1. UNSPECIFIED FENTANYL TRANSDERMA L SYSTEM [Suspect]
     Active Substance: FENTANYL
     Indication: PRODUCT USED FOR UNKNOWN INDICATION
     Route: 062

REACTIONS (5)
  - Intentional product use issue [Unknown]
  - Overdose [Unknown]
  - Drug diversion [Unknown]
  - Adverse event [Unknown]
  - Drug tolerance [Unknown]
